FAERS Safety Report 16650983 (Version 1)
Quarter: 2019Q3

REPORT INFORMATION
  Report Type: Spontaneous
  Country: US (occurrence: US)
  Receive Date: 20190731
  Receipt Date: 20190731
  Transmission Date: 20191004
  Serious: No
  Sender: FDA-Public Use
  Company Number: US-ASTRAZENECA-2019SE96108

PATIENT
  Sex: Female

DRUGS (1)
  1. SYMBICORT [Suspect]
     Active Substance: BUDESONIDE\FORMOTEROL FUMARATE DIHYDRATE
     Indication: MALAISE
     Dosage: 80/4.5 MCG UNKNOWN
     Route: 055

REACTIONS (6)
  - Nasopharyngitis [Unknown]
  - Bronchitis [Unknown]
  - Cough [Unknown]
  - Lower respiratory tract congestion [Unknown]
  - Respiratory tract infection [Unknown]
  - Lower respiratory tract infection [Unknown]
